FAERS Safety Report 22344888 (Version 1)
Quarter: 2023Q2

REPORT INFORMATION
  Report Type: Spontaneous
  Country: US (occurrence: None)
  Receive Date: 20230518
  Receipt Date: 20230518
  Transmission Date: 20230721
  Serious: No
  Sender: FDA-Public Use
  Company Number: None

PATIENT
  Age: 33 Year
  Sex: Female

DRUGS (1)
  1. HUMIRA [Suspect]
     Active Substance: ADALIMUMAB
     Indication: Colitis ulcerative
     Dosage: OTHER QUANTITY : STARTER PACK;?OTHER FREQUENCY : EVERY 14 DAY;?
     Route: 058
     Dates: start: 20230426

REACTIONS (1)
  - Headache [None]

NARRATIVE: CASE EVENT DATE: 20230426
